FAERS Safety Report 4387164-3 (Version None)
Quarter: 2004Q2

REPORT INFORMATION
  Report Type: 
  Country: None (occurrence: None)
  Receive Date: 20040629
  Receipt Date: 20040629
  Transmission Date: 20050107
  Serious: No
  Sender: FDA-Public Use
  Company Number: None

PATIENT
  Age: 62 Year
  Sex: Female
  Weight: 100 kg

DRUGS (1)
  1. GAMMAR-P I.V. [Suspect]
     Indication: NEUROPATHY
     Dosage: 35 GM DAILY IV
     Route: 042
     Dates: start: 20040609, end: 20040611

REACTIONS (1)
  - RENAL FAILURE ACUTE [None]
